FAERS Safety Report 6031121-8 (Version None)
Quarter: 2008Q4

REPORT INFORMATION
  Report Type: 
  Country: None (occurrence: None)
  Receive Date: 20081222
  Receipt Date: 20081014
  Transmission Date: 20090506
  Serious: No
  Sender: FDA-Public Use
  Company Number: US-WYE-H06391208

PATIENT
  Age: 65 Year
  Sex: Male
  Weight: 86.26 kg

DRUGS (8)
  1. PRISTIQ [Suspect]
     Indication: DEPRESSION
     Dosage: 50 MG 1X PER 1 DAY, ORAL
     Route: 048
     Dates: start: 20081007
  2. XANAX [Concomitant]
  3. ABILIFY [Concomitant]
  4. NEXIUM [Concomitant]
  5. PROVIGIL [Concomitant]
  6. LIPITOR [Concomitant]
  7. MICARDIS [Concomitant]
  8. WELLBUTRIN [Concomitant]

REACTIONS (6)
  - AGITATION [None]
  - BLOOD PRESSURE INCREASED [None]
  - DRUG INEFFECTIVE [None]
  - FATIGUE [None]
  - HEADACHE [None]
  - HYPOAESTHESIA [None]
